FAERS Safety Report 5878065-X (Version None)
Quarter: 2008Q3

REPORT INFORMATION
  Report Type: 
  Country: None (occurrence: None)
  Receive Date: 20080911
  Receipt Date: 20080904
  Transmission Date: 20090109
  Serious: Yes (Hospitalization)
  Sender: FDA-Public Use
  Company Number: JP-EISAI MEDICAL RESEARCH-E2090-00542-SPO-JP

PATIENT
  Age: 14 Year
  Sex: Female

DRUGS (7)
  1. EXCEGRAN [Suspect]
     Indication: TEMPORAL LOBE EPILEPSY
     Dosage: UNKNOWN
     Route: 048
  2. EXCEGRAN [Suspect]
     Route: 048
  3. EXCEGRAN [Suspect]
     Route: 048
  4. DEXAMETHASONE [Concomitant]
     Route: 042
  5. GLYCEROL 2.6% [Concomitant]
  6. HYDANTOIN [Concomitant]
  7. METHYLPREDNISOLONE 16MG TAB [Concomitant]

REACTIONS (2)
  - INTENTIONAL OVERDOSE [None]
  - INTRACRANIAL PRESSURE INCREASED [None]
